FAERS Safety Report 17533800 (Version 1)
Quarter: 2020Q1

REPORT INFORMATION
  Report Type: Spontaneous
  Country: CH (occurrence: CH)
  Receive Date: 20200312
  Receipt Date: 20200312
  Transmission Date: 20200409
  Serious: Yes (Hospitalization, Other)
  Sender: FDA-Public Use
  Company Number: CH-OTSUKA-2020_006589

PATIENT
  Age: 20 Year
  Sex: Female

DRUGS (5)
  1. SEROQUEL [Interacting]
     Active Substance: QUETIAPINE FUMARATE
     Dosage: 150 MG, QD
     Route: 065
     Dates: start: 20200221
  2. QUETIAPINE. [Concomitant]
     Active Substance: QUETIAPINE
     Indication: PRODUCT USED FOR UNKNOWN INDICATION
     Dosage: UNK
     Route: 065
     Dates: start: 2017, end: 2017
  3. ABILIFY [Suspect]
     Active Substance: ARIPIPRAZOLE
     Indication: SCHIZOAFFECTIVE DISORDER
     Dosage: UNK
     Route: 065
     Dates: start: 2016, end: 20200116
  4. SEROQUEL [Interacting]
     Active Substance: QUETIAPINE FUMARATE
     Indication: SCHIZOAFFECTIVE DISORDER
     Dosage: 50 MG, QD
     Route: 065
     Dates: start: 20200117, end: 20200217
  5. FLUCTINE [Interacting]
     Active Substance: FLUOXETINE HYDROCHLORIDE
     Indication: SCHIZOAFFECTIVE DISORDER
     Dosage: 40 MG, QD
     Route: 065

REACTIONS (16)
  - Withdrawal syndrome [Not Recovered/Not Resolved]
  - Drug interaction [Recovered/Resolved]
  - Dizziness postural [Not Recovered/Not Resolved]
  - Pain [Unknown]
  - Eye movement disorder [Recovered/Resolved]
  - Eye pain [Unknown]
  - Mental disorder [Unknown]
  - Vision blurred [Unknown]
  - Galactorrhoea [Unknown]
  - Dystonia [Not Recovered/Not Resolved]
  - Mental impairment [Unknown]
  - Tardive dyskinesia [Unknown]
  - Product use in unapproved indication [Unknown]
  - Dyschromatopsia [Recovering/Resolving]
  - Headache [Unknown]
  - Tinnitus [Recovered/Resolved]

NARRATIVE: CASE EVENT DATE: 2016
